FAERS Safety Report 4595562-8 (Version None)
Quarter: 2005Q1

REPORT INFORMATION
  Report Type: 
  Country: None (occurrence: None)
  Receive Date: 20050224
  Receipt Date: 20050204
  Transmission Date: 20050727
  Serious: Yes (Death)
  Sender: FDA-Public Use
  Company Number: USA050290026

PATIENT
  Age: 23 Year
  Sex: Male

DRUGS (2)
  1. CYMBALTA [Suspect]
     Indication: DEPRESSION
     Dosage: 60 MG
  2. TEGRETOL (CARBAMAZEPINE RIVOPHARM) [Concomitant]

REACTIONS (6)
  - BIPOLAR DISORDER [None]
  - COMPLETED SUICIDE [None]
  - INTENTIONAL MISUSE [None]
  - MANIA [None]
  - SCHIZOPHRENIA [None]
  - SUICIDE ATTEMPT [None]
